FAERS Safety Report 20380736 (Version 2)
Quarter: 2022Q1

REPORT INFORMATION
  Report Type: Report from Study
  Country: US (occurrence: US)
  Receive Date: 20220127
  Receipt Date: 20220223
  Transmission Date: 20220423
  Serious: Yes (Death)
  Sender: FDA-Public Use
  Company Number: US-UCBSA-2022002568

PATIENT
  Age: 85 Year
  Sex: Male
  Weight: 113 kg

DRUGS (1)
  1. ROTIGOTINE [Suspect]
     Active Substance: ROTIGOTINE
     Indication: Parkinson^s disease
     Dosage: 8 MILLIGRAM, ONCE DAILY (QD)
     Route: 062
     Dates: end: 20220105

REACTIONS (2)
  - Pneumonia aspiration [Fatal]
  - Anaemia [Unknown]

NARRATIVE: CASE EVENT DATE: 20211201
